FAERS Safety Report 10265844 (Version 1)
Quarter: 2014Q2

REPORT INFORMATION
  Report Type: Spontaneous
  Country: BE (occurrence: BE)
  Receive Date: 20140627
  Receipt Date: 20140627
  Transmission Date: 20141212
  Serious: Yes (Death, Hospitalization)
  Sender: FDA-Public Use
  Company Number: BE-VIIV HEALTHCARE LIMITED-B1008408A

PATIENT
  Age: 44 Year
  Sex: Male

DRUGS (5)
  1. LAMIVUDINE-HIV [Suspect]
     Indication: HIV INFECTION
     Route: 065
  2. ZIDOVUDINE [Suspect]
     Indication: HIV INFECTION
     Route: 065
  3. ABACAVIR [Suspect]
     Indication: HIV INFECTION
     Route: 065
  4. SAQUINAVIR [Suspect]
     Indication: HIV INFECTION
     Route: 065
  5. RITONAVIR [Suspect]
     Indication: HIV INFECTION
     Route: 065

REACTIONS (13)
  - Immune reconstitution inflammatory syndrome [Unknown]
  - Pulmonary oedema [Fatal]
  - Brain oedema [Fatal]
  - Bronchopneumonia [Fatal]
  - Abscess [Unknown]
  - Central nervous system lesion [Unknown]
  - Mycobacterium test positive [Unknown]
  - Mycobacterium avium complex infection [Unknown]
  - Pyrexia [Unknown]
  - Dyspnoea [Unknown]
  - Decreased appetite [Unknown]
  - Fatigue [Unknown]
  - Cytomegalovirus infection [Unknown]
